FAERS Safety Report 13506709 (Version 1)
Quarter: 2017Q2

REPORT INFORMATION
  Report Type: Spontaneous
  Country: US (occurrence: US)
  Receive Date: 20170502
  Receipt Date: 20170502
  Transmission Date: 20170830
  Serious: No
  Sender: FDA-Public Use
  Company Number: US-ROCHE-1402413

PATIENT
  Sex: Female

DRUGS (6)
  1. AVASTIN [Suspect]
     Active Substance: BEVACIZUMAB
     Indication: HISTOPLASMOSIS
     Dosage: LEFT EYE ONLY
     Route: 050
     Dates: start: 20140331
  2. LUCENTIS [Suspect]
     Active Substance: RANIBIZUMAB
     Indication: HISTOPLASMOSIS
     Dosage: LEFT EYE ONLY
     Route: 065
     Dates: start: 20140512
  3. LUCENTIS [Suspect]
     Active Substance: RANIBIZUMAB
     Indication: RETINAL OEDEMA
     Route: 065
     Dates: start: 2008
  4. AVASTIN [Suspect]
     Active Substance: BEVACIZUMAB
     Indication: RETINAL OEDEMA
     Route: 050
     Dates: start: 20140414
  5. LUCENTIS [Suspect]
     Active Substance: RANIBIZUMAB
     Indication: RETINAL HAEMORRHAGE
  6. AVASTIN [Suspect]
     Active Substance: BEVACIZUMAB
     Indication: RETINAL HAEMORRHAGE

REACTIONS (3)
  - Therapy non-responder [Unknown]
  - Visual impairment [Unknown]
  - Visual acuity reduced [Unknown]
